FAERS Safety Report 14929558 (Version 1)
Quarter: 2018Q2

REPORT INFORMATION
  Report Type: Spontaneous
  Country: FR (occurrence: FR)
  Receive Date: 20180523
  Receipt Date: 20180523
  Transmission Date: 20180711
  Serious: Yes (Other)
  Sender: FDA-Public Use
  Company Number: FR-TEVA-2018-FR-894421

PATIENT
  Age: 65 Year
  Sex: Female

DRUGS (8)
  1. INSPRA 25 MG, COMPRIM? PELLICUL? [Concomitant]
     Route: 048
  2. STILNOX 10 MG, COMPRIM? PELLICUL? S?CABLE [Concomitant]
     Active Substance: ZOLPIDEM TARTRATE
     Route: 048
  3. PRAVASTATINE SODIQUE [Suspect]
     Active Substance: PRAVASTATIN SODIUM
     Indication: THROMBOSIS PROPHYLAXIS
     Dosage: 20 MILLIGRAM DAILY;
     Route: 048
     Dates: start: 20170509, end: 20170824
  4. ATACAND 4 MG, COMPRIM? S?CABLE [Concomitant]
     Route: 048
  5. ASPIRINE PROTECT [Concomitant]
     Active Substance: ASPIRIN
     Route: 048
  6. LEVOTHYROX 125 MICROGRAMMES, COMPRIM? S?CABLE [Suspect]
     Active Substance: LEVOTHYROXINE SODIUM
     Indication: HYPOTHYROIDISM
     Dosage: 1 DOSAGE FORMS DAILY;
     Route: 048
     Dates: start: 201703
  7. INEXIUM 40 MG, COMPRIM? GASTRO-R?SISTANT [Concomitant]
     Active Substance: ESOMEPRAZOLE
     Route: 048
  8. CARDENSIEL 2,5 MG, COMPRIM? PELLICUL? S?CABLE [Concomitant]
     Route: 048

REACTIONS (10)
  - Tendonitis [Not Recovered/Not Resolved]
  - Weight increased [Not Recovered/Not Resolved]
  - Diffuse alopecia [Not Recovered/Not Resolved]
  - Headache [Not Recovered/Not Resolved]
  - Visual impairment [Not Recovered/Not Resolved]
  - Insomnia [Not Recovered/Not Resolved]
  - Irritability [Not Recovered/Not Resolved]
  - Dyspnoea [Not Recovered/Not Resolved]
  - Muscle spasms [Not Recovered/Not Resolved]
  - Fatigue [Not Recovered/Not Resolved]

NARRATIVE: CASE EVENT DATE: 201704
